FAERS Safety Report 5341481-9 (Version None)
Quarter: 2007Q2

REPORT INFORMATION
  Report Type: 
  Country: None (occurrence: None)
  Receive Date: 20070601
  Receipt Date: 20070523
  Transmission Date: 20071010
  Serious: Yes (Other)
  Sender: FDA-Public Use
  Company Number: PHBS2007TR05005

PATIENT
  Sex: Male

DRUGS (2)
  1. MIACALCIN [Suspect]
     Indication: OSTEOPOROSIS
  2. BISPHOSPHONATES [Suspect]
     Indication: OSTEOPOROSIS
     Route: 065

REACTIONS (1)
  - ARTERIOSCLEROSIS [None]
